FAERS Safety Report 12549491 (Version 1)
Quarter: 2016Q3

REPORT INFORMATION
  Report Type: Spontaneous
  Country: US (occurrence: US)
  Receive Date: 20160712
  Receipt Date: 20160712
  Transmission Date: 20161109
  Serious: No
  Sender: FDA-Public Use
  Company Number: US-PERRIGO-15US007684

PATIENT
  Age: 57 Year
  Sex: Female

DRUGS (1)
  1. GYNAZOLE-1 [Suspect]
     Active Substance: BUTOCONAZOLE NITRATE
     Indication: VULVOVAGINAL CANDIDIASIS
     Dosage: 100 MG, SINGLE
     Route: 067
     Dates: start: 201507, end: 201507

REACTIONS (1)
  - Drug ineffective [Unknown]

NARRATIVE: CASE EVENT DATE: 201507
